FAERS Safety Report 7134850-8 (Version None)
Quarter: 2010Q4

REPORT INFORMATION
  Report Type: 
  Country: None (occurrence: None)
  Receive Date: 20101130
  Receipt Date: 20101130
  Transmission Date: 20110411
  Serious: No
  Sender: FDA-Public Use
  Company Number: None

PATIENT
  Age: 38 Year
  Sex: Female
  Weight: 55.7924 kg

DRUGS (2)
  1. BOTOX TYPE B [Suspect]
  2. BOTOX [Suspect]

REACTIONS (5)
  - DYSPHAGIA [None]
  - IMMUNE SYSTEM DISORDER [None]
  - OVERDOSE [None]
  - PNEUMONIA [None]
  - VISION BLURRED [None]
